FAERS Safety Report 6412675-6 (Version None)
Quarter: 2009Q4

REPORT INFORMATION
  Report Type: 
  Country: None (occurrence: None)
  Receive Date: 20091023
  Receipt Date: 20091016
  Transmission Date: 20100525
  Serious: Yes (Hospitalization)
  Sender: FDA-Public Use
  Company Number: CH-JNJFOC-20091005198

PATIENT
  Age: 17 Year
  Sex: Male
  Weight: 77 kg

DRUGS (2)
  1. REMICADE [Suspect]
     Indication: ANKYLOSING SPONDYLITIS
     Dosage: TOTAL OF 7 INFUSIONS
     Route: 042
  2. METHOTREXATE [Suspect]
     Indication: ANKYLOSING SPONDYLITIS

REACTIONS (1)
  - HEPATITIS CHOLESTATIC [None]
